FAERS Safety Report 8410133-0 (Version None)
Quarter: 2012Q2

REPORT INFORMATION
  Report Type: 
  Country: None (occurrence: None)
  Receive Date: 20120605
  Receipt Date: 20120604
  Transmission Date: 20120825
  Serious: No
  Sender: FDA-Public Use
  Company Number: US-PFIZER INC-2012134077

PATIENT
  Sex: Female
  Weight: 113.38 kg

DRUGS (13)
  1. INVEGA [Concomitant]
     Indication: ANXIETY
  2. MORPHINE [Concomitant]
     Indication: PAIN
     Dosage: UNK
  3. LOVASTATIN [Concomitant]
     Indication: BLOOD CHOLESTEROL INCREASED
     Dosage: 20 MG, UNK
  4. CHANTIX [Suspect]
     Dosage: 1 MG, 2X/DAY
     Route: 048
     Dates: start: 20120501
  5. CYMBALTA [Concomitant]
     Indication: DEPRESSION
     Dosage: UNK
  6. METFORMIN [Concomitant]
     Indication: DIABETES MELLITUS
     Dosage: 500 MG, UNK
  7. INVEGA [Concomitant]
     Indication: DEPRESSION
     Dosage: UNK
  8. PERCOCET [Concomitant]
     Indication: PAIN
     Dosage: UNK
  9. INVEGA [Concomitant]
     Indication: PANIC ATTACK
  10. CYMBALTA [Concomitant]
     Indication: PANIC ATTACK
  11. PRILOSEC [Concomitant]
     Indication: GASTRIC DISORDER
     Dosage: UNK
  12. CHANTIX [Suspect]
     Indication: SMOKING CESSATION THERAPY
     Dosage: 0.5 MG, 1X/DAY
     Route: 048
     Dates: start: 20120501, end: 20120501
  13. CYMBALTA [Concomitant]
     Indication: ANXIETY

REACTIONS (1)
  - DRUG INEFFECTIVE [None]
